FAERS Safety Report 14274910 (Version 2)
Quarter: 2018Q1

REPORT INFORMATION
  Report Type: Spontaneous
  Country: US (occurrence: US)
  Receive Date: 20171212
  Receipt Date: 20180322
  Transmission Date: 20180508
  Serious: Yes (Hospitalization, Other)
  Sender: FDA-Public Use
  Company Number: US-GLAXOSMITHKLINE-US2017187345

PATIENT
  Age: 56 Year
  Sex: Female

DRUGS (6)
  1. BENLYSTA [Suspect]
     Active Substance: BELIMUMAB
     Indication: SYSTEMIC LUPUS ERYTHEMATOSUS
     Dosage: UNK
     Dates: start: 2015, end: 20171115
  2. HYDROXYCHLOROQUINE [Concomitant]
     Active Substance: HYDROXYCHLOROQUINE
  3. BYSTOLIC [Concomitant]
     Active Substance: NEBIVOLOL HYDROCHLORIDE
  4. NORVASC [Concomitant]
     Active Substance: AMLODIPINE BESYLATE
  5. TOPAMAX [Concomitant]
     Active Substance: TOPIRAMATE
  6. LEVOTHYROXINE. [Concomitant]
     Active Substance: LEVOTHYROXINE

REACTIONS (20)
  - Nausea [Not Recovered/Not Resolved]
  - Drug effect incomplete [Unknown]
  - Lethargy [Recovering/Resolving]
  - Disturbance in attention [Unknown]
  - Incorrect route of drug administration [Unknown]
  - Vomiting [Recovered/Resolved with Sequelae]
  - Drug ineffective [Unknown]
  - Loss of consciousness [Recovered/Resolved]
  - Blindness transient [Recovering/Resolving]
  - Posterior reversible encephalopathy syndrome [Unknown]
  - Amnesia [Not Recovered/Not Resolved]
  - Psoriasis [Unknown]
  - Visual impairment [Not Recovered/Not Resolved]
  - Incorrect drug administration rate [Unknown]
  - Seizure [Not Recovered/Not Resolved]
  - Overdose [Unknown]
  - Fatigue [Recovering/Resolving]
  - Feeling abnormal [Unknown]
  - Dizziness [Unknown]
  - Wrong technique in product usage process [Unknown]

NARRATIVE: CASE EVENT DATE: 2017
